FAERS Safety Report 4512223-1 (Version None)
Quarter: 2004Q4

REPORT INFORMATION
  Report Type: 
  Country: None (occurrence: None)
  Receive Date: 20041123
  Receipt Date: 20041111
  Transmission Date: 20050328
  Serious: Yes (Other)
  Sender: FDA-Public Use
  Company Number: 200410709BNE

PATIENT
  Age: 87 Year
  Sex: Female

DRUGS (9)
  1. ASPIRIN [Suspect]
     Indication: ATRIAL FIBRILLATION
     Dosage: 300 MG, QD, ORAL
     Route: 048
     Dates: start: 20040201, end: 20041008
  2. ASPIRIN [Suspect]
     Indication: THROMBOSIS PROPHYLAXIS
     Dosage: 300 MG, QD, ORAL
     Route: 048
     Dates: start: 20040201, end: 20041008
  3. DIGOXIN [Concomitant]
  4. ISOSORBIDE [Concomitant]
  5. LANSOPRAZOLE [Concomitant]
  6. LOSARTAN [Concomitant]
  7. MIRTAZAPINE [Concomitant]
  8. SIMVASTATIN [Concomitant]
  9. FRUSEMIDE [Concomitant]

REACTIONS (3)
  - BLOOD PRESSURE DECREASED [None]
  - GASTROINTESTINAL HAEMORRHAGE [None]
  - OESOPHAGITIS [None]
